FAERS Safety Report 16037122 (Version 1)
Quarter: 2019Q1

REPORT INFORMATION
  Report Type: Spontaneous
  Country: US (occurrence: US)
  Receive Date: 20190305
  Receipt Date: 20190305
  Transmission Date: 20190418
  Serious: No
  Sender: FDA-Public Use
  Company Number: US-IMPAX LABORATORIES, LLC-2018-IPXL-03357

PATIENT
  Age: 69 Year
  Sex: Male

DRUGS (7)
  1. RYTARY [Suspect]
     Active Substance: CARBIDOPA\LEVODOPA
     Dosage: 36.25/145 MG, SEVEN CAPSULES, DAILY
     Route: 065
     Dates: start: 2018, end: 2018
  2. RYTARY [Suspect]
     Active Substance: CARBIDOPA\LEVODOPA
     Dosage: 36.25/145 MG, ONE CAPSULE DURING THE DAY
     Route: 065
     Dates: start: 20180914, end: 2018
  3. RYTARY [Suspect]
     Active Substance: CARBIDOPA\LEVODOPA
     Dosage: 36.25/145 MG, SEVEN CAPSULES, 4 TIMES A DAY
     Route: 065
     Dates: start: 2018, end: 2018
  4. AZILECT [Concomitant]
     Active Substance: RASAGILINE MESYLATE
     Indication: PRODUCT USED FOR UNKNOWN INDICATION
     Dosage: UNK
     Route: 065
  5. MIRAPEX [Concomitant]
     Active Substance: PRAMIPEXOLE DIHYDROCHLORIDE
     Indication: PRODUCT USED FOR UNKNOWN INDICATION
     Dosage: UNK
     Route: 065
  6. RYTARY [Suspect]
     Active Substance: CARBIDOPA\LEVODOPA
     Indication: PARKINSON^S DISEASE
     Dosage: 36.25/145 MG, ONE CAPSULE AT BEDTIME
     Route: 065
     Dates: start: 201805, end: 2018
  7. RYTARY [Suspect]
     Active Substance: CARBIDOPA\LEVODOPA
     Dosage: 48.75/145 MG, SIX CAPSULES, THREE TIMES A DAY
     Route: 065
     Dates: start: 2018

REACTIONS (5)
  - Hypokinesia [Unknown]
  - Drug ineffective [Not Recovered/Not Resolved]
  - Musculoskeletal stiffness [Unknown]
  - Memory impairment [Unknown]
  - Prescribed overdose [Unknown]

NARRATIVE: CASE EVENT DATE: 2018
